FAERS Safety Report 23167043 (Version 1)
Quarter: 2023Q4

REPORT INFORMATION
  Report Type: Report from Study
  Country: US (occurrence: US)
  Receive Date: 20231109
  Receipt Date: 20231109
  Transmission Date: 20240109
  Serious: No
  Sender: FDA-Public Use
  Company Number: US-BIOVITRUM-2023-US-010842

PATIENT
  Age: 40 Year
  Sex: Female

DRUGS (2)
  1. KINERET [Suspect]
     Active Substance: ANAKINRA
     Indication: Rheumatoid arthritis
     Dosage: 100 MG DAILY
     Route: 058
     Dates: start: 20230504
  2. KINERET [Suspect]
     Active Substance: ANAKINRA
     Dosage: 100 MG DAILY
     Route: 058
     Dates: start: 20230218

REACTIONS (5)
  - Injection site pain [Recovered/Resolved]
  - Product use complaint [Unknown]
  - C-reactive protein increased [Unknown]
  - Product dose omission issue [Unknown]
  - Therapeutic response decreased [Unknown]
